FAERS Safety Report 11004869 (Version 2)
Quarter: 2015Q3

REPORT INFORMATION
  Report Type: Other
  Country: IT (occurrence: IT)
  Receive Date: 20150409
  Receipt Date: 20150708
  Transmission Date: 20151125
  Serious: Yes (Hospitalization, Disabling)
  Sender: FDA-Public Use
  Company Number: IT-MYLANLABS-2015M1011535

PATIENT

DRUGS (3)
  1. METFORMIN HYDROCHLORIDE. [Suspect]
     Active Substance: METFORMIN HYDROCHLORIDE
     Indication: WEIGHT LOSS DIET
     Dosage: 1 DF, QD
     Route: 048
     Dates: start: 20140909, end: 20140909
  2. BUPROPION. [Suspect]
     Active Substance: BUPROPION
     Indication: WEIGHT LOSS DIET
     Dosage: DAILY
     Route: 048
     Dates: start: 20140909, end: 20140909
  3. PHENYLPROPANOLAMINE HYDROCHLORIDE [Suspect]
     Active Substance: PHENYLPROPANOLAMINE HYDROCHLORIDE
     Indication: WEIGHT LOSS DIET
     Dosage: 1 DF, QD
     Route: 048
     Dates: start: 20140909, end: 20140909

REACTIONS (5)
  - Cerebral haemorrhage [Recovered/Resolved with Sequelae]
  - Aphasia [Recovered/Resolved with Sequelae]
  - Hemiparesis [Recovered/Resolved with Sequelae]
  - Hypertensive crisis [Recovered/Resolved with Sequelae]
  - Vasogenic cerebral oedema [Recovered/Resolved with Sequelae]

NARRATIVE: CASE EVENT DATE: 20140909
